FAERS Safety Report 8512945-1 (Version None)
Quarter: 2012Q3

REPORT INFORMATION
  Report Type: 
  Country: None (occurrence: None)
  Receive Date: 20120716
  Receipt Date: 20120710
  Transmission Date: 20120928
  Serious: Yes (Death, Life-Threatening, Hospitalization, Disabling)
  Sender: FDA-Public Use
  Company Number: GB-CELGENEUS-167-C5013-11012975

PATIENT
  Sex: Male
  Weight: 86.4 kg

DRUGS (14)
  1. DOCETAXEL [Suspect]
     Dosage: 120 MILLIGRAM
     Route: 065
     Dates: start: 20110125
  2. FERROUS FUMARATE [Concomitant]
     Dosage: 600 MILLIGRAM
     Route: 048
     Dates: end: 20110205
  3. ENOXAPARIN [Concomitant]
     Indication: THROMBOSIS PROPHYLAXIS
     Dosage: 120 MILLIGRAM
     Route: 065
  4. PREDNISONE [Suspect]
     Dosage: 10 MILLIGRAM
     Route: 065
     Dates: start: 20101210
  5. DOCETAXEL [Suspect]
     Indication: PROSTATE CANCER
     Route: 065
     Dates: start: 20101001
  6. METOCLOPRAMIDE [Concomitant]
     Indication: ANTIEMETIC SUPPORTIVE CARE
     Dosage: 30 MILLIGRAM
     Route: 048
     Dates: end: 20110204
  7. PREDNISONE [Suspect]
     Indication: PROSTATE CANCER
     Dosage: 10 MILLIGRAM
     Route: 065
     Dates: start: 20101001
  8. INDORAMIN [Concomitant]
     Indication: HYPERTENSION
     Dosage: 40 MILLIGRAM
     Route: 048
     Dates: end: 20110205
  9. OMEPRAZOLE [Concomitant]
     Dosage: 40 MILLIGRAM
     Route: 048
     Dates: end: 20110205
  10. DOCETAXEL [Suspect]
     Dosage: 120 MILLIGRAM
     Route: 065
     Dates: start: 20101210
  11. PREDNISONE [Suspect]
     Dosage: 10 MILLIGRAM
     Route: 065
     Dates: start: 20110125
  12. LENALIDOMIDE [Suspect]
     Indication: PROSTATE CANCER
     Route: 048
     Dates: start: 20101001
  13. LENALIDOMIDE [Suspect]
     Route: 048
     Dates: start: 20101210, end: 20101210
  14. INFUMORPH [Concomitant]
     Dosage: 60 MILLIGRAM
     Route: 048
     Dates: end: 20110205

REACTIONS (3)
  - DYSPNOEA [None]
  - PROSTATE CANCER METASTATIC [None]
  - PULMONARY EMBOLISM [None]
